FAERS Safety Report 8590674-6 (Version None)
Quarter: 2012Q3

REPORT INFORMATION
  Report Type: 
  Country: None (occurrence: None)
  Receive Date: 20120813
  Receipt Date: 20120726
  Transmission Date: 20120928
  Serious: Yes (Other)
  Sender: FDA-Public Use
  Company Number: JP-009507513-1207JPN008762

PATIENT

DRUGS (15)
  1. REBETOL [Suspect]
     Route: 048
     Dates: end: 20120709
  2. ALLOPURINOL [Concomitant]
     Indication: HEPATITIS C
     Route: 048
     Dates: start: 20120611
  3. LANSOPRAZOLE [Suspect]
     Route: 048
     Dates: start: 20120514, end: 20120709
  4. REBETOL [Suspect]
     Route: 048
  5. LANSOPRAZOLE [Concomitant]
     Route: 048
     Dates: start: 20120514, end: 20120709
  6. TELAVIC [Suspect]
     Indication: HEPATITIS C
     Route: 048
     Dates: start: 20120514, end: 20120709
  7. MYSER (DIFLUPREDNATE) [Concomitant]
     Dosage: 5G/TUBE/DAY
     Route: 061
     Dates: start: 20120525
  8. PEG-INTRON [Suspect]
     Indication: HEPATITIS C
     Dosage: 1.5MCG/KG/WEEK
     Route: 058
     Dates: start: 20120514
  9. REBETOL [Suspect]
     Route: 048
     Dates: end: 20120709
  10. ALLEGRA [Concomitant]
     Route: 048
     Dates: start: 20120518
  11. MYSER (CYCLOSERINE) [Concomitant]
     Dosage: 5G/TUBE/DAY
     Route: 061
     Dates: start: 20120525
  12. LANSOPRAZOLE [Concomitant]
     Route: 048
     Dates: start: 20120514, end: 20120709
  13. REBETOL [Suspect]
     Indication: HEPATITIS C
     Route: 048
     Dates: start: 20120514
  14. REBETOL [Suspect]
     Route: 048
  15. LANSOPRAZOLE [Concomitant]
     Indication: HEPATITIS C
     Route: 048
     Dates: start: 20120514

REACTIONS (1)
  - PANCREATITIS ACUTE [None]
